FAERS Safety Report 11938124 (Version 1)
Quarter: 2016Q1

REPORT INFORMATION
  Report Type: Spontaneous
  Country: US (occurrence: None)
  Receive Date: 20160121
  Receipt Date: 20160121
  Transmission Date: 20160526
  Serious: Yes (Hospitalization)
  Sender: FDA-Public Use
  Company Number: None

PATIENT
  Age: 38 Year
  Sex: Female
  Weight: 98.7 kg

DRUGS (1)
  1. DIPHENHYDRAMINE. [Suspect]
     Active Substance: DIPHENHYDRAMINE
     Route: 042
     Dates: start: 20151128, end: 20151128

REACTIONS (7)
  - Pharyngeal oedema [None]
  - Electrocardiogram QT prolonged [None]
  - Angioedema [None]
  - Wheezing [None]
  - Choking [None]
  - Cough [None]
  - Condition aggravated [None]

NARRATIVE: CASE EVENT DATE: 20151128
